FAERS Safety Report 4940407-7 (Version None)
Quarter: 2006Q1

REPORT INFORMATION
  Report Type: 
  Country: None (occurrence: None)
  Receive Date: 20060127
  Receipt Date: 20050623
  Transmission Date: 20060701
  Serious: Yes (Hospitalization, Other)
  Sender: FDA-Public Use
  Company Number: 200515326US

PATIENT
  Age: 29 Year
  Sex: Male

DRUGS (3)
  1. AMARYL [Suspect]
     Indication: DIABETES MELLITUS NON-INSULIN-DEPENDENT
     Dosage: 12 MG ONCE
     Dates: start: 20050619, end: 20050619
  2. AMARYL [Suspect]
     Indication: DIABETES MELLITUS NON-INSULIN-DEPENDENT
     Dosage: 4 MG QD
  3. EXCEDRIN (MIGRAINE) [Suspect]

REACTIONS (1)
  - HYPOGLYCAEMIA [None]
